FAERS Safety Report 9413272 (Version 3)
Quarter: 2013Q3

REPORT INFORMATION
  Report Type: Spontaneous
  Country: US (occurrence: US)
  Receive Date: 20130722
  Receipt Date: 20130815
  Transmission Date: 20140515
  Serious: Yes (Other)
  Sender: FDA-Public Use
  Company Number: CHPA2013US011268

PATIENT
  Age: 61 Year
  Sex: Male

DRUGS (4)
  1. PRIVATE LABEL [Suspect]
     Indication: SMOKING CESSATION THERAPY
     Dosage: 7 MG, UNK
     Route: 062
  2. PRIVATE LABEL [Suspect]
     Dosage: 14 MG, UNK
     Route: 062
  3. PRIVATE LABEL [Suspect]
     Dosage: 21 MG, UNK
     Route: 062
  4. SIMVASTATIN [Concomitant]
     Indication: BLOOD CHOLESTEROL INCREASED

REACTIONS (7)
  - Thyroid disorder [Recovering/Resolving]
  - Feeling of body temperature change [Recovered/Resolved]
  - Weight increased [Recovering/Resolving]
  - Constipation [Recovered/Resolved]
  - Burning sensation [Recovered/Resolved]
  - Application site pain [Recovered/Resolved]
  - Off label use [Unknown]
